FAERS Safety Report 4641185-1 (Version None)
Quarter: 2005Q2

REPORT INFORMATION
  Report Type: 
  Country: None (occurrence: None)
  Receive Date: 20050421
  Receipt Date: 20050414
  Transmission Date: 20051028
  Serious: Yes (Hospitalization)
  Sender: FDA-Public Use
  Company Number: 200511341FR

PATIENT
  Age: 53 Year
  Sex: Male
  Weight: 67 kg

DRUGS (5)
  1. FLAGYL [Suspect]
     Indication: CLOSTRIDIUM COLITIS
     Route: 048
     Dates: start: 20050217, end: 20050228
  2. RIVASA [Suspect]
     Indication: COLITIS
     Route: 048
     Dates: start: 20050126, end: 20050225
  3. NEXIUM [Concomitant]
     Dates: start: 20050126
  4. GAVISCON [Concomitant]
     Dates: start: 20050126
  5. CLAMOXYL [Concomitant]
     Indication: LUNG DISORDER
     Dates: start: 20050201

REACTIONS (5)
  - CLOSTRIDIUM COLITIS [None]
  - ENTEROCOLITIS HAEMORRHAGIC [None]
  - LUNG DISORDER [None]
  - PANCREATITIS ACUTE [None]
  - PULMONARY EMBOLISM [None]
